FAERS Safety Report 7441105-0 (Version None)
Quarter: 2011Q2

REPORT INFORMATION
  Report Type: 
  Country: None (occurrence: None)
  Receive Date: 20110427
  Receipt Date: 20110419
  Transmission Date: 20111010
  Serious: Yes (Hospitalization, Other)
  Sender: FDA-Public Use
  Company Number: JP-BAYER-2011-026385

PATIENT
  Age: 62 Year
  Sex: Female

DRUGS (6)
  1. ADALAT CC [Suspect]
     Dosage: 40MG ORAL
     Route: 048
     Dates: start: 20090824, end: 20090829
  2. OLMETEC [Concomitant]
     Dosage: DAILY DOSE 20 MG
     Route: 048
     Dates: start: 20090824, end: 20090929
  3. OLMETEC [Concomitant]
     Indication: HYPERTENSION
     Dosage: DAILY DOSE 40 MG
     Route: 048
     Dates: start: 20090616, end: 20090810
  4. ADALAT CC [Suspect]
     Indication: HYPERTENSION
     Dosage: DAILY DOSE 40 MG
     Route: 048
     Dates: start: 20090714, end: 20090810
  5. URINORM [Suspect]
     Indication: HYPERURICAEMIA
     Dosage: DAILY DOSE 50 MG
     Route: 048
     Dates: start: 20090616, end: 20090810
  6. NORVASC [Concomitant]
     Dosage: DAILY DOSE 10 MG
     Route: 048
     Dates: start: 20090407, end: 20090713

REACTIONS (4)
  - LIVER DISORDER [None]
  - JAUNDICE [None]
  - URINE COLOUR ABNORMAL [None]
  - LIVER FUNCTION TEST ABNORMAL [None]
